FAERS Safety Report 17252874 (Version 1)
Quarter: 2020Q1

REPORT INFORMATION
  Report Type: Spontaneous
  Country: FR (occurrence: FR)
  Receive Date: 20200109
  Receipt Date: 20200109
  Transmission Date: 20200409
  Serious: Yes (Other)
  Sender: FDA-Public Use
  Company Number: FR-MYLANLABS-2020M1001845

PATIENT
  Age: 20 Year
  Sex: Male
  Weight: 85 kg

DRUGS (3)
  1. AMOXICILLIN. [Suspect]
     Active Substance: AMOXICILLIN
     Indication: TONSILLITIS
     Dosage: 8 GRAM
     Route: 048
     Dates: start: 20190906, end: 20190907
  2. DOLIPRANE [Suspect]
     Active Substance: ACETAMINOPHEN
     Indication: TONSILLITIS
     Dosage: 6 GRAM
     Route: 048
     Dates: start: 20190906, end: 20190907
  3. IBUPROFEN. [Suspect]
     Active Substance: IBUPROFEN
     Indication: TONSILLITIS
     Dosage: 3.2 GRAM
     Route: 048
     Dates: start: 20190906, end: 20190907

REACTIONS (1)
  - Accidental overdose [Recovered/Resolved]

NARRATIVE: CASE EVENT DATE: 20190906
